FAERS Safety Report 23921215 (Version 1)
Quarter: 2024Q2

REPORT INFORMATION
  Report Type: Spontaneous
  Country: FR (occurrence: FR)
  Receive Date: 20240530
  Receipt Date: 20240530
  Transmission Date: 20240716
  Serious: Yes (Other)
  Sender: FDA-Public Use
  Company Number: FR-TEVA-VS-3203457

PATIENT
  Age: 41 Year
  Sex: Female

DRUGS (1)
  1. TERIFLUNOMIDE [Suspect]
     Active Substance: TERIFLUNOMIDE
     Indication: Multiple sclerosis
     Dosage: ONE DOSAGE FORM PER DAY
     Route: 065
     Dates: start: 20240408, end: 20240516

REACTIONS (8)
  - Necrosis [Not Recovered/Not Resolved]
  - Product substitution issue [Unknown]
  - Mastication disorder [Not Recovered/Not Resolved]
  - Acne [Not Recovered/Not Resolved]
  - Tinea pedis [Not Recovered/Not Resolved]
  - Abdominal pain upper [Not Recovered/Not Resolved]
  - Blood test abnormal [Not Recovered/Not Resolved]
  - Ear lobe infection [Not Recovered/Not Resolved]

NARRATIVE: CASE EVENT DATE: 20240101
